FAERS Safety Report 9276294 (Version 4)
Quarter: 2013Q3

REPORT INFORMATION
  Report Type: Spontaneous
  Country: DK (occurrence: DK)
  Receive Date: 20130507
  Receipt Date: 20130721
  Transmission Date: 20140515
  Serious: Yes (Hospitalization)
  Sender: FDA-Public Use
  Company Number: PHHY2013DK044075

PATIENT
  Sex: Male

DRUGS (3)
  1. EXELON [Suspect]
     Indication: DEMENTIA
     Dosage: 4.5 MG, BID
     Dates: start: 20110720
  2. RAMIPRIL [Suspect]
     Indication: CARDIAC DISORDER
  3. CARDIL [Suspect]
     Indication: CARDIAC DISORDER

REACTIONS (4)
  - Angioedema [Unknown]
  - Swelling face [Recovering/Resolving]
  - Swollen tongue [Recovering/Resolving]
  - Hypersensitivity [Unknown]
